FAERS Safety Report 7427210-3 (Version None)
Quarter: 2011Q2

REPORT INFORMATION
  Report Type: 
  Country: None (occurrence: None)
  Receive Date: 20110420
  Receipt Date: 20110412
  Transmission Date: 20111010
  Serious: No
  Sender: FDA-Public Use
  Company Number: US-PFIZER INC-2011059442

PATIENT
  Sex: Female

DRUGS (2)
  1. PREMARIN [Suspect]
     Indication: HOT FLUSH
     Dosage: 0.3 MG, DAILY
     Route: 048
  2. PREMARIN [Suspect]
     Indication: MENOPAUSE

REACTIONS (2)
  - DRUG INEFFECTIVE [None]
  - HOT FLUSH [None]
